FAERS Safety Report 5078041-3 (Version None)
Quarter: 2006Q3

REPORT INFORMATION
  Report Type: 
  Country: None (occurrence: None)
  Receive Date: 20060808
  Receipt Date: 20060726
  Transmission Date: 20061208
  Serious: Yes (Hospitalization)
  Sender: FDA-Public Use
  Company Number: 2006092580

PATIENT
  Age: 61 Year
  Sex: Female

DRUGS (3)
  1. CLINDAMYCIN HYDROCHLORIDE [Suspect]
     Indication: PROPHYLAXIS
     Dosage: ORAL
     Route: 048
     Dates: start: 20060315, end: 20060315
  2. PREDNISOLONE [Concomitant]
  3. SANDIMMUNE [Concomitant]

REACTIONS (4)
  - DOCUMENTED HYPERSENSITIVITY TO ADMINISTERED DRUG [None]
  - KAWASAKI'S DISEASE [None]
  - TOOTH EXTRACTION [None]
  - TOXIC SKIN ERUPTION [None]
